FAERS Safety Report 10700138 (Version 2)
Quarter: 2015Q1

REPORT INFORMATION
  Report Type: Spontaneous
  Country: CA (occurrence: CA)
  Receive Date: 20150109
  Receipt Date: 20150119
  Transmission Date: 20150721
  Serious: Yes (Hospitalization, Other)
  Sender: FDA-Public Use
  Company Number: CA-ASTELLAS-2015US000165

PATIENT
  Age: 49 Year
  Sex: Male

DRUGS (3)
  1. PREDNISONE. [Suspect]
     Active Substance: PREDNISONE
     Indication: RENAL TRANSPLANT
     Dosage: UNK, UNKNOWN FREQ.
     Route: 065
  2. MYFORTIC [Suspect]
     Active Substance: MYCOPHENOLATE SODIUM
     Indication: RENAL TRANSPLANT
     Dosage: UNK, UNKNOWN FREQ.
     Route: 065
  3. ADVAGRAF [Suspect]
     Active Substance: TACROLIMUS
     Indication: RENAL TRANSPLANT
     Dosage: UNK, UNKNOWN FREQ.
     Route: 065

REACTIONS (13)
  - Pneumocystis jirovecii pneumonia [Unknown]
  - Fistula [Unknown]
  - Transplant [Unknown]
  - Seizure [Unknown]
  - Troponin increased [Unknown]
  - Peripheral swelling [Unknown]
  - Subarachnoid haemorrhage [Unknown]
  - Atrial fibrillation [Unknown]
  - Renal transplant failure [Unknown]
  - Depressed level of consciousness [Unknown]
  - Cytomegalovirus viraemia [Unknown]
  - Hepatic enzyme increased [Unknown]
  - Rectal ulcer [Unknown]

NARRATIVE: CASE EVENT DATE: 201407
